FAERS Safety Report 6682798-5 (Version None)
Quarter: 2010Q2

REPORT INFORMATION
  Report Type: 
  Country: None (occurrence: None)
  Receive Date: 20100415
  Receipt Date: 20100406
  Transmission Date: 20101027
  Serious: Yes (Hospitalization)
  Sender: FDA-Public Use
  Company Number: US-AMGEN-QUU404037

PATIENT
  Sex: Female

DRUGS (9)
  1. ARANESP [Suspect]
     Indication: RENAL FAILURE CHRONIC
  2. SENSIPAR [Concomitant]
     Indication: HYPERPARATHYROIDISM SECONDARY
  3. OMEPRAZOLE [Concomitant]
  4. METRONIDAZOLE [Concomitant]
  5. LEVOCARNITINE [Concomitant]
  6. CAPTOPRIL [Concomitant]
  7. CALCITRIOL [Concomitant]
  8. ALBUTEROL [Concomitant]
  9. ACETAMINOPHEN [Concomitant]

REACTIONS (1)
  - THERAPEUTIC RESPONSE DECREASED [None]
